FAERS Safety Report 10693381 (Version 3)
Quarter: 2015Q2

REPORT INFORMATION
  Report Type: Report from Study
  Country: EG (occurrence: EG)
  Receive Date: 20150106
  Receipt Date: 20150506
  Transmission Date: 20150821
  Serious: Yes (Other)
  Sender: FDA-Public Use
  Company Number: PHHY2013EG112332

PATIENT
  Age: 8 Year
  Sex: Female

DRUGS (2)
  1. ICL670A [Suspect]
     Active Substance: DEFERASIROX
     Dosage: 750 OT
     Route: 048
     Dates: start: 20120128, end: 20131101
  2. ICL670A [Suspect]
     Active Substance: DEFERASIROX
     Indication: HAEMOSIDEROSIS
     Route: 048
     Dates: start: 20110924

REACTIONS (4)
  - Anaemia [Unknown]
  - Deafness bilateral [Not Recovered/Not Resolved]
  - Leukocytosis [Unknown]
  - Serum ferritin increased [Unknown]

NARRATIVE: CASE EVENT DATE: 20111127
